FAERS Safety Report 6200060-1 (Version None)
Quarter: 2009Q2

REPORT INFORMATION
  Report Type: 
  Country: None (occurrence: None)
  Receive Date: 20090518
  Receipt Date: 20090210
  Transmission Date: 20091009
  Serious: No
  Sender: FDA-Public Use
  Company Number: WAES 0808USA00311

PATIENT
  Age: 81 Year
  Sex: Female

DRUGS (5)
  1. JANUVIA [Suspect]
     Indication: TYPE 2 DIABETES MELLITUS
     Dosage: 100 MG/DAILY/PO
     Route: 048
     Dates: start: 20080609
  2. ACYCLOVIR [Concomitant]
  3. ASPIRIN [Concomitant]
  4. CHONDROITIN [Concomitant]
  5. GLUCOSAMINE [Concomitant]

REACTIONS (5)
  - EYE INFECTION [None]
  - FATIGUE [None]
  - HYPOAESTHESIA [None]
  - MUSCULOSKELETAL PAIN [None]
  - PARAESTHESIA [None]
